FAERS Safety Report 7940886-7 (Version None)
Quarter: 2011Q4

REPORT INFORMATION
  Report Type: 
  Country: None (occurrence: None)
  Receive Date: 20111128
  Receipt Date: 20111122
  Transmission Date: 20120403
  Serious: No
  Sender: FDA-Public Use
  Company Number: GB-PFIZER INC-2011268767

PATIENT
  Age: 48 Year
  Sex: Male

DRUGS (5)
  1. OXALIPLATIN [Suspect]
     Indication: GASTROINTESTINAL CARCINOMA
  2. CAPECITABINE [Suspect]
     Indication: GASTROINTESTINAL CARCINOMA
  3. FLUOROURACIL [Suspect]
     Indication: GASTROINTESTINAL CARCINOMA
     Dosage: UNK
  4. AVASTIN [Suspect]
     Indication: GASTROINTESTINAL CARCINOMA
     Dosage: UNK
  5. IRINOTECAN HCL [Suspect]
     Indication: GASTROINTESTINAL CARCINOMA
     Dosage: UNK

REACTIONS (2)
  - COLON CANCER METASTATIC [None]
  - DISEASE PROGRESSION [None]
